FAERS Safety Report 7645874-6 (Version None)
Quarter: 2011Q3

REPORT INFORMATION
  Report Type: 
  Country: None (occurrence: None)
  Receive Date: 20110729
  Receipt Date: 20110720
  Transmission Date: 20111222
  Serious: Yes (Hospitalization, Other)
  Sender: FDA-Public Use
  Company Number: US-ASTRAZENECA-2008UW10060

PATIENT
  Age: 19280 Day
  Sex: Female
  Weight: 133.4 kg

DRUGS (30)
  1. SEROQUEL [Suspect]
     Indication: ANXIETY
     Dosage: 100 MG-300 MG
     Route: 048
     Dates: start: 20020515
  2. ZYPREXA [Concomitant]
     Dates: start: 20010901, end: 20020501
  3. ALDACTONE [Concomitant]
     Route: 048
  4. NEXIUM [Concomitant]
     Route: 048
  5. TOPAMAX [Concomitant]
     Route: 048
  6. ACTOS [Concomitant]
     Route: 065
  7. TRAZODONE HCL [Concomitant]
     Route: 065
  8. LIPITOR [Concomitant]
     Route: 065
  9. SIMVASTATIN [Concomitant]
     Route: 048
  10. SEROQUEL [Suspect]
     Dosage: VARIOUS (INCLUDING BUT NOT LIMITED TO 100 MG, 150 MG, 300 MG)
     Route: 048
     Dates: start: 20020101
  11. EVISTA [Concomitant]
     Route: 065
  12. LISINOPRIL [Concomitant]
     Route: 065
  13. GLUCOPHAGE [Concomitant]
     Dosage: 500 MG 2 TABLETS AT NIGHT
     Route: 048
  14. ACCUPRIL [Concomitant]
     Route: 065
  15. BEXTRA [Concomitant]
     Route: 065
  16. NAPROXEN [Concomitant]
     Route: 065
  17. OXYCODONE HCL AND ACETAMINOPHEN [Concomitant]
     Route: 065
  18. SEROQUEL [Suspect]
     Dosage: VARIOUS (INCLUDING BUT NOT LIMITED TO 100 MG, 150 MG, 300 MG)
     Route: 048
     Dates: start: 20020101
  19. KLONOPIN [Concomitant]
     Route: 048
  20. SEROQUEL [Suspect]
     Indication: BIPOLAR DISORDER
     Dosage: 100 MG-300 MG
     Route: 048
     Dates: start: 20020515
  21. SEROQUEL [Suspect]
     Dosage: VARIOUS (INCLUDING BUT NOT LIMITED TO 100 MG, 150 MG, 300 MG)
     Route: 048
     Dates: start: 20020101
  22. REDUX [Concomitant]
     Dates: start: 20030901
  23. PROVIGIL [Concomitant]
     Route: 048
  24. SEROQUEL [Suspect]
     Indication: DEPRESSION
     Dosage: 100 MG-300 MG
     Route: 048
     Dates: start: 20020515
  25. PROZAC [Concomitant]
     Route: 065
  26. GLUCOTROL [Concomitant]
     Route: 065
  27. POTASSIUM ACETATE [Concomitant]
     Route: 065
  28. ABILIFY [Concomitant]
     Dates: start: 20010401
  29. LEXAPRO [Concomitant]
     Dates: start: 20060101, end: 20070101
  30. XENICAL [Concomitant]
     Route: 065

REACTIONS (10)
  - BLOOD CHOLESTEROL INCREASED [None]
  - OBESITY [None]
  - SLEEP APNOEA SYNDROME [None]
  - CHEST PAIN [None]
  - NON-CARDIAC CHEST PAIN [None]
  - OSTEOARTHRITIS [None]
  - BREAST CANCER [None]
  - CONVULSION [None]
  - TYPE 2 DIABETES MELLITUS [None]
  - HYPERTENSION [None]
